FAERS Safety Report 9846526 (Version 1)
Quarter: 2014Q1

REPORT INFORMATION
  Report Type: Spontaneous
  Country: GB (occurrence: None)
  Receive Date: 20140117
  Receipt Date: 20140117
  Transmission Date: 20141002
  Serious: Yes (Hospitalization)
  Sender: FDA-Public Use
  Company Number: AUR-APL-2014-00395

PATIENT
  Age: 81 Year
  Sex: Male
  Weight: 84.5 kg

DRUGS (12)
  1. TAMSULOSIN (TAMSULOSIN) [Suspect]
     Indication: PRODUCT USED FOR UNKNOWN INDICATION
     Dates: start: 20130901
  2. AMLODIPINE (AMLODIPINE) [Concomitant]
  3. BACLOFEN (BACLOFEN) [Concomitant]
  4. CITALOPRAM (CITALOPRAM) [Concomitant]
  5. DIPROBASE (DIPROBASE) [Concomitant]
  6. EPILIM (VALPROATE SODIUM) [Concomitant]
  7. FERROUS SULPHATE (FERROUS SULFATE) [Concomitant]
  8. FOLIC ACID (FOLIC ACID) [Concomitant]
  9. FUROSEMIDE (FUROSEMIDE) [Concomitant]
  10. OMEPRAZOLE (OMEPRAZOLE) [Concomitant]
  11. SALBUTAMOL (SALBUTAMOL) [Concomitant]
  12. SERETIDE (SERETIDE) [Concomitant]

REACTIONS (1)
  - Colonic pseudo-obstruction [None]
